FAERS Safety Report 8190009 (Version 2)
Quarter: 2013Q3

REPORT INFORMATION
  Report Type: Report from Study
  Country: CA (occurrence: CA)
  Receive Date: 20111019
  Receipt Date: 20130925
  Transmission Date: 20140515
  Serious: Yes (Death, Other)
  Sender: FDA-Public Use
  Company Number: CA-CELGENEUS-028-21660-11101313

PATIENT
  Sex: 0

DRUGS (3)
  1. ABRAXANE [Suspect]
     Indication: SQUAMOUS CELL CARCINOMA OF HEAD AND NECK
     Route: 041
  2. CISPLATIN [Suspect]
     Indication: SQUAMOUS CELL CARCINOMA OF HEAD AND NECK
     Route: 041
  3. 5-FLUOROURACIL [Suspect]
     Indication: SQUAMOUS CELL CARCINOMA OF HEAD AND NECK

REACTIONS (7)
  - Neoplasm recurrence [Fatal]
  - Stomatitis [Unknown]
  - Dysphagia [Unknown]
  - Lymphopenia [Unknown]
  - Hyponatraemia [Unknown]
  - Neutropenia [Unknown]
  - Squamous cell carcinoma of head and neck [Unknown]
